FAERS Safety Report 5074893-1 (Version None)
Quarter: 2006Q3

REPORT INFORMATION
  Report Type: 
  Country: None (occurrence: None)
  Receive Date: 20060804
  Receipt Date: 20060721
  Transmission Date: 20061208
  Serious: Yes (Other)
  Sender: FDA-Public Use
  Company Number: CHPA2006US07172

PATIENT
  Age: 85 Year
  Sex: Male
  Weight: 78.5 kg

DRUGS (2)
  1. TRANSDERM SCOP [Suspect]
     Indication: VERTIGO
     Dosage: 1.5 MG. Q72H, TRANSDERMAL
     Route: 062
  2. TOPROL-XL [Concomitant]

REACTIONS (6)
  - NAUSEA [None]
  - OFF LABEL USE [None]
  - STOMACH DISCOMFORT [None]
  - VOMITING [None]
  - WEIGHT DECREASED [None]
  - WRONG TECHNIQUE IN DRUG USAGE PROCESS [None]
